FAERS Safety Report 9386478 (Version 1)
Quarter: 2013Q3

REPORT INFORMATION
  Report Type: Spontaneous
  Country: US (occurrence: None)
  Receive Date: 20130703
  Receipt Date: 20130703
  Transmission Date: 20140515
  Serious: Yes (Other)
  Sender: FDA-Public Use
  Company Number: None

PATIENT
  Age: 46 Year
  Sex: Male
  Weight: 106.14 kg

DRUGS (1)
  1. ASPIRIN EC [Suspect]
     Indication: BLOOD CHOLESTEROL INCREASED
     Dosage: 95 DAYS WORTH OF MEDICATI
     Dates: start: 20120325, end: 20130701

REACTIONS (5)
  - Abdominal pain upper [None]
  - Nausea [None]
  - Diarrhoea [None]
  - Medication error [None]
  - Drug dispensing error [None]
